FAERS Safety Report 7114197-6 (Version None)
Quarter: 2010Q4

REPORT INFORMATION
  Report Type: 
  Country: None (occurrence: None)
  Receive Date: 20101119
  Receipt Date: 20101110
  Transmission Date: 20110411
  Serious: Yes (Hospitalization, Other)
  Sender: FDA-Public Use
  Company Number: BR-ABBOTT-10P-020-0676052-00

PATIENT
  Sex: Female
  Weight: 61 kg

DRUGS (11)
  1. HUMIRA [Suspect]
     Indication: RHEUMATOID ARTHRITIS
     Route: 058
  2. PROFENID [Suspect]
     Indication: SINUSITIS
     Dosage: DILUTED IN SALINE SOLUTION
     Route: 042
     Dates: start: 20100601
  3. PROFENID [Suspect]
     Indication: HEADACHE
  4. PROFENID [Suspect]
     Indication: BONE PAIN
  5. UNKNOWN ANESTHESIA [Suspect]
     Indication: SURGERY
     Dates: start: 20100902, end: 20100902
  6. APROVEL [Concomitant]
     Indication: BLOOD PRESSURE
     Route: 048
     Dates: start: 20080101
  7. INDIAN NUT 150MG/ GINKGO BILOBA 150MG [Concomitant]
     Indication: VARICOSE VEIN
     Route: 048
     Dates: start: 20100401
  8. CALCIUM D [Concomitant]
     Indication: MINERAL SUPPLEMENTATION
     Route: 048
     Dates: start: 19970101
  9. GELATIN [Concomitant]
     Indication: MUSCLE DISORDER
     Route: 048
     Dates: start: 20090101
  10. TRAMADOL HCL [Concomitant]
     Indication: PAIN
     Dosage: IF NECESSARY
  11. METICORTEN [Concomitant]
     Indication: ARTHRITIS
     Route: 048
     Dates: start: 19830101

REACTIONS (22)
  - ANAESTHETIC COMPLICATION [None]
  - ANXIETY [None]
  - CLAVICLE FRACTURE [None]
  - DEPRESSION [None]
  - DRUG HYPERSENSITIVITY [None]
  - ERYTHEMA [None]
  - FEELING ABNORMAL [None]
  - HEADACHE [None]
  - MOBILITY DECREASED [None]
  - MUSCLE SPASMS [None]
  - MUSCULOSKELETAL STIFFNESS [None]
  - NERVOUSNESS [None]
  - PAIN [None]
  - PARAESTHESIA ORAL [None]
  - PRURITUS [None]
  - ROAD TRAFFIC ACCIDENT [None]
  - SINUSITIS [None]
  - SWELLING FACE [None]
  - TACHYCARDIA [None]
  - URTICARIA [None]
  - VISION BLURRED [None]
  - WEIGHT DECREASED [None]
